FAERS Safety Report 16920846 (Version 4)
Quarter: 2019Q4

REPORT INFORMATION
  Report Type: Report from Study
  Country: US (occurrence: US)
  Receive Date: 20191015
  Receipt Date: 20191206
  Transmission Date: 20200122
  Serious: Yes (Hospitalization, Other)
  Sender: FDA-Public Use
  Company Number: PHHO2019US009792

PATIENT
  Age: 19 Year
  Sex: Male

DRUGS (7)
  1. PREDNISONE. [Concomitant]
     Active Substance: PREDNISONE
     Indication: LEUKAEMIA
     Dosage: 40 MG, BID X 5 DAYS
     Route: 048
     Dates: start: 20170713
  2. METHOTREXATE. [Suspect]
     Active Substance: METHOTREXATE
     Indication: LEUKAEMIA
     Dosage: 15 MILLIGRAM (DAY 1)
     Route: 037
     Dates: start: 20170822, end: 20190808
  3. MERCAPTOPURINE. [Concomitant]
     Active Substance: MERCAPTOPURINE
     Indication: LEUKAEMIA
     Dosage: 150 MG, DAYS 1-84
     Route: 048
     Dates: start: 20180614
  4. VINCRISTINE [Concomitant]
     Active Substance: VINCRISTINE
     Indication: LEUKAEMIA
     Dosage: 2 MILLIGRAM, DAYS 1,29, 57
     Route: 042
     Dates: start: 20170905
  5. INC424A [Suspect]
     Active Substance: RUXOLITINIB
     Indication: ACUTE LYMPHOCYTIC LEUKAEMIA
     Dosage: 100 MG, BID, DAYS 1-14, 29-42,57-70
     Route: 048
     Dates: start: 20170822
  6. METHOTREXATE. [Suspect]
     Active Substance: METHOTREXATE
     Dosage: 40 MILLIGRAM (DAYS 8, 15, 22, 29, 36, 43, 50, 56, 64, 71, 78)
     Route: 048
     Dates: start: 20180614, end: 20190919
  7. PENTAMIDINE [Concomitant]
     Active Substance: PENTAMIDINE
     Indication: ANTIBIOTIC PROPHYLAXIS
     Dosage: 300 MILLIGRAM, Q4 WEEKS
     Route: 042
     Dates: start: 20180518

REACTIONS (2)
  - Mucosal inflammation [Recovered/Resolved]
  - Pyrexia [Recovered/Resolved]

NARRATIVE: CASE EVENT DATE: 20190923
